FAERS Safety Report 7574186-4 (Version None)
Quarter: 2011Q2

REPORT INFORMATION
  Report Type: 
  Country: None (occurrence: None)
  Receive Date: 20110627
  Receipt Date: 20110617
  Transmission Date: 20111010
  Serious: Yes (Other)
  Sender: FDA-Public Use
  Company Number: PHHY2011JP54986

PATIENT
  Age: 18 Year
  Sex: Male

DRUGS (1)
  1. CIBACEN [Suspect]
     Indication: GLOMERULONEPHRITIS CHRONIC
     Dosage: 5 MG, UNK
     Route: 048

REACTIONS (4)
  - RHABDOMYOLYSIS [None]
  - BLOOD CREATINE PHOSPHOKINASE INCREASED [None]
  - PAIN [None]
  - PAIN IN EXTREMITY [None]
